FAERS Safety Report 9646344 (Version 1)
Quarter: 2013Q4

REPORT INFORMATION
  Report Type: Spontaneous
  Country: US (occurrence: US)
  Receive Date: 20131025
  Receipt Date: 20131025
  Transmission Date: 20140711
  Serious: Yes (Other)
  Sender: FDA-Public Use
  Company Number: US-ALLERGAN-1316469US

PATIENT
  Age: 62 Year
  Sex: Female

DRUGS (2)
  1. RESTASIS [Suspect]
     Indication: DRY EYE
     Dosage: 2 GTT, BID EACH EYE
     Route: 047
     Dates: start: 200810, end: 201310
  2. TRAZODONE [Concomitant]
     Indication: INSOMNIA
     Dosage: UNK UNK, QHS
     Route: 048

REACTIONS (2)
  - Lymphoma [Unknown]
  - Skin plaque [Unknown]
